FAERS Safety Report 7313408-1 (Version None)
Quarter: 2011Q1

REPORT INFORMATION
  Report Type: 
  Country: None (occurrence: None)
  Receive Date: 20110225
  Receipt Date: 20110222
  Transmission Date: 20110831
  Serious: Yes (Other)
  Sender: FDA-Public Use
  Company Number: US-PFIZER INC-2010170491

PATIENT
  Sex: Female

DRUGS (3)
  1. ZOLOFT [Concomitant]
     Indication: DEPRESSION
     Dosage: UNK
     Dates: start: 20080101
  2. CHANTIX [Suspect]
     Indication: SMOKING CESSATION THERAPY
     Dosage: STARTING MONTH PACK
     Dates: start: 20100106, end: 20100708
  3. ZOLOFT [Concomitant]
     Indication: ANXIETY

REACTIONS (9)
  - SUICIDE ATTEMPT [None]
  - NIGHTMARE [None]
  - AMNESIA [None]
  - AGGRESSION [None]
  - ANXIETY [None]
  - PANIC ATTACK [None]
  - DEPRESSION [None]
  - INSOMNIA [None]
  - DISTURBANCE IN ATTENTION [None]
